FAERS Safety Report 17643684 (Version 2)
Quarter: 2025Q4

REPORT INFORMATION
  Report Type: Spontaneous
  Country: EU (occurrence: EU)
  Receive Date: 20200408
  Receipt Date: 20251007
  Transmission Date: 20260117
  Serious: Yes (Hospitalization, Other)
  Sender: AUROBINDO
  Company Number: EU-MYLANLABS-2020M1028897

PATIENT
  Age: 52 Year
  Sex: Female

DRUGS (4)
  1. METOPROLOL [Interacting]
     Active Substance: METOPROLOL
     Indication: Sinus tachycardia
     Dosage: 100 MILLIGRAM, ONCE A DAY
     Route: 065
  2. LANSOPRAZOLE [Interacting]
     Active Substance: LANSOPRAZOLE
     Indication: Gastrooesophageal reflux disease
     Dosage: 15 MILLIGRAM, ONCE A DAY
     Route: 065
  3. METOCLOPRAMIDE [Interacting]
     Active Substance: METOCLOPRAMIDE
     Indication: Gastrooesophageal reflux disease
     Dosage: 30 MILLIGRAM, ONCE A DAY
     Route: 048
  4. DULOXETINE [Interacting]
     Active Substance: DULOXETINE
     Indication: Generalised anxiety disorder
     Dosage: 30 MILLIGRAM, ONCE A DAY
     Route: 065

REACTIONS (4)
  - Sinus bradycardia [Unknown]
  - Loss of consciousness [Unknown]
  - Illness [Unknown]
  - Drug interaction [Unknown]
